FAERS Safety Report 10064591 (Version 1)
Quarter: 2014Q2

REPORT INFORMATION
  Report Type: Spontaneous
  Country: US (occurrence: None)
  Receive Date: 20140407
  Receipt Date: 20140407
  Transmission Date: 20141212
  Serious: Yes (Other)
  Sender: FDA-Public Use
  Company Number: None

PATIENT
  Age: 59 Year
  Sex: Female

DRUGS (1)
  1. MOMETASONE FUROATE [Suspect]
     Dosage: APPLY THINLY, ONCE DAILY
     Dates: start: 20140319, end: 20140330

REACTIONS (5)
  - Application site erythema [None]
  - Application site exfoliation [None]
  - Application site pruritus [None]
  - Application site swelling [None]
  - Application site hypersensitivity [None]
